FAERS Safety Report 10493523 (Version 2)
Quarter: 2015Q1

REPORT INFORMATION
  Report Type: Spontaneous
  Country: US (occurrence: US)
  Receive Date: 20141002
  Receipt Date: 20150212
  Transmission Date: 20150720
  Serious: No
  Sender: FDA-Public Use
  Company Number: US-GLAXOSMITHKLINE-A1085138A

PATIENT

DRUGS (11)
  1. MUPIROCIN OINTMENT [Concomitant]
     Active Substance: MUPIROCIN
  2. ADVAIR DISKUS [Suspect]
     Active Substance: FLUTICASONE PROPIONATE\SALMETEROL XINAFOATE
     Indication: ASTHMA
     Dosage: 500/50
     Route: 055
     Dates: start: 2009
  3. DUONEB [Concomitant]
     Active Substance: ALBUTEROL SULFATE\IPRATROPIUM BROMIDE
     Route: 055
  4. CENTRUM SILVER [Concomitant]
     Active Substance: VITAMINS
     Indication: SUPPLEMENTATION THERAPY
  5. OXYBUTYNIN [Concomitant]
     Active Substance: OXYBUTYNIN
  6. LEVOTHYROXINE [Concomitant]
     Active Substance: LEVOTHYROXINE
  7. FLUOROMETHOLONE. [Concomitant]
     Active Substance: FLUOROMETHOLONE
  8. OMEPRAZOLE. [Concomitant]
     Active Substance: OMEPRAZOLE
  9. RESTASIS [Concomitant]
     Active Substance: CYCLOSPORINE
  10. FLUTICASONE NASAL [Concomitant]
     Active Substance: FLUTICASONE\FLUTICASONE PROPIONATE
  11. THEOPHYLLINE [Concomitant]
     Active Substance: THEOPHYLLINE ANHYDROUS

REACTIONS (2)
  - Oral candidiasis [Recovered/Resolved]
  - Tongue ulceration [Unknown]

NARRATIVE: CASE EVENT DATE: 20140702
